FAERS Safety Report 19247673 (Version 1)
Quarter: 2021Q2

REPORT INFORMATION
  Report Type: Spontaneous
  Country: JP (occurrence: JP)
  Receive Date: 20210512
  Receipt Date: 20210512
  Transmission Date: 20210717
  Serious: Yes (Other)
  Sender: FDA-Public Use
  Company Number: JP-SUN PHARMACEUTICAL INDUSTRIES LTD-2021R1-295974

PATIENT
  Age: 86 Year
  Sex: Female

DRUGS (4)
  1. TADALAFIL. [Suspect]
     Active Substance: TADALAFIL
     Indication: CARDIAC FAILURE
  2. BERAPROST [Suspect]
     Active Substance: BERAPROST
     Indication: CARDIAC FAILURE
     Dosage: UNK
     Route: 065
  3. BERAPROST [Suspect]
     Active Substance: BERAPROST
     Indication: PULMONARY HYPERTENSION
  4. TADALAFIL. [Suspect]
     Active Substance: TADALAFIL
     Indication: PULMONARY HYPERTENSION
     Dosage: UNK
     Route: 065

REACTIONS (3)
  - Drug ineffective [Unknown]
  - Hypotension [Unknown]
  - Thrombocytopenia [Unknown]
